FAERS Safety Report 15766954 (Version 1)
Quarter: 2018Q4

REPORT INFORMATION
  Report Type: Spontaneous
  Country: TR (occurrence: TR)
  Receive Date: 20181227
  Receipt Date: 20181227
  Transmission Date: 20190205
  Serious: Yes (Hospitalization, Other)
  Sender: FDA-Public Use
  Company Number: TR-TAKEDA-2018TUS036394

PATIENT
  Age: 32 Year
  Sex: Male

DRUGS (9)
  1. ARVELES [Suspect]
     Active Substance: DEXKETOPROFEN
     Indication: ARTHRALGIA
  2. INFLIXIMAB [Suspect]
     Active Substance: INFLIXIMAB
     Indication: PRODUCT USED FOR UNKNOWN INDICATION
     Dosage: 5 MG/KG, UNK
     Route: 065
     Dates: start: 201807, end: 201810
  3. TRILEPTAL [Concomitant]
     Active Substance: OXCARBAZEPINE
     Dosage: UNK UNK, BID
  4. ARVELES [Suspect]
     Active Substance: DEXKETOPROFEN
     Indication: PYREXIA
     Dosage: UNK UNK, BID
     Route: 065
  5. KEPPRA [Concomitant]
     Active Substance: LEVETIRACETAM
     Dosage: UNK UNK, BID
  6. DEKLARIT [Suspect]
     Active Substance: CLARITHROMYCIN
     Indication: PRODUCT USED FOR UNKNOWN INDICATION
     Dosage: 500 MG, BID
     Route: 065
  7. LANSOR [Concomitant]
     Active Substance: LANSOPRAZOLE
     Dosage: UNK UNK, QD
  8. ENTYVIO [Suspect]
     Active Substance: VEDOLIZUMAB
     Indication: COLITIS ULCERATIVE
     Dosage: 300 MG, UNK
     Route: 042
     Dates: start: 201810
  9. ASACOL [Concomitant]
     Active Substance: MESALAMINE
     Dosage: UNK UNK, BID

REACTIONS (8)
  - Bronchitis [Unknown]
  - Arthralgia [Unknown]
  - Tubulointerstitial nephritis [Unknown]
  - Mucous stools [Unknown]
  - Diarrhoea haemorrhagic [Unknown]
  - Abdominal pain upper [Unknown]
  - Joint swelling [Unknown]
  - Acute kidney injury [Unknown]
